FAERS Safety Report 5773336-X (Version None)
Quarter: 2008Q2

REPORT INFORMATION
  Report Type: 
  Country: None (occurrence: None)
  Receive Date: 20080616
  Receipt Date: 20080609
  Transmission Date: 20081010
  Serious: Yes (Death, Other)
  Sender: FDA-Public Use
  Company Number: US-BAYER-200813061NA

PATIENT
  Age: 67 Year
  Sex: Female
  Weight: 79 kg

DRUGS (6)
  1. CAMPATH [Suspect]
     Indication: CHRONIC LYMPHOCYTIC LEUKAEMIA
     Dosage: TOTAL DAILY DOSE: 30 MG
     Dates: start: 20071112, end: 20080130
  2. TYLENOL [Concomitant]
     Indication: PREMEDICATION
  3. BENADRYL [Concomitant]
     Indication: PREMEDICATION
  4. BACTRIM [Concomitant]
     Indication: INFECTION PROPHYLAXIS
  5. ANTIVIRALS NOS [Concomitant]
     Indication: INFECTION PROPHYLAXIS
  6. RED BLOOD CELLS [Concomitant]
     Dosage: AS USED: 2 U
     Route: 042
     Dates: start: 20080121, end: 20080121

REACTIONS (6)
  - ALOPECIA [None]
  - ASTHENIA [None]
  - CAPILLARY LEAK SYNDROME [None]
  - DEATH [None]
  - DYSPNOEA [None]
  - FLUID RETENTION [None]
